FAERS Safety Report 6258156-4 (Version None)
Quarter: 2009Q3

REPORT INFORMATION
  Report Type: 
  Country: None (occurrence: None)
  Receive Date: 20090707
  Receipt Date: 20090625
  Transmission Date: 20100115
  Serious: Yes (Other)
  Sender: FDA-Public Use
  Company Number: US-BAYER-200921289NA

PATIENT
  Sex: Female

DRUGS (3)
  1. AVELOX [Suspect]
     Indication: ASTHMA
     Route: 048
     Dates: start: 20090211
  2. CORTISONE [Concomitant]
  3. ANTIHISTAMINES [Concomitant]

REACTIONS (7)
  - BEDRIDDEN [None]
  - DIARRHOEA [None]
  - HYPERSENSITIVITY [None]
  - POISONING [None]
  - SKIN EXFOLIATION [None]
  - SKIN HAEMORRHAGE [None]
  - VOMITING [None]
